FAERS Safety Report 4859831-6 (Version None)
Quarter: 2005Q4

REPORT INFORMATION
  Report Type: 
  Country: None (occurrence: None)
  Receive Date: 20051219
  Receipt Date: 20051215
  Transmission Date: 20060501
  Serious: Yes (Hospitalization)
  Sender: FDA-Public Use
  Company Number: 2005/384

PATIENT
  Age: 63 Year
  Sex: Male

DRUGS (6)
  1. AMOXICILLINE RPG [Suspect]
     Dosage: 3G PER DAY
     Route: 048
     Dates: start: 20050531, end: 20050601
  2. PNEUMOREL [Concomitant]
     Dosage: .6PCT PER DAY
     Route: 048
     Dates: start: 20050530, end: 20050601
  3. KARDEGIC [Concomitant]
     Route: 065
  4. ZOCOR [Concomitant]
     Route: 065
  5. PENTASA [Concomitant]
     Route: 065
  6. MAXEPA [Concomitant]
     Route: 065

REACTIONS (3)
  - HEPATIC ENZYME INCREASED [None]
  - PYREXIA [None]
  - RASH SCARLATINIFORM [None]
